FAERS Safety Report 18571680 (Version 1)
Quarter: 2020Q4

REPORT INFORMATION
  Report Type: Spontaneous
  Country: US (occurrence: US)
  Receive Date: 20201202
  Receipt Date: 20201202
  Transmission Date: 20210114
  Serious: Yes (Hospitalization)
  Sender: FDA-Public Use
  Company Number: US-LUPIN PHARMACEUTICALS INC.-2020-08239

PATIENT
  Age: 52 Year
  Sex: Female

DRUGS (5)
  1. MYCOPHENOLATE [Suspect]
     Active Substance: MYCOPHENOLIC ACID
     Indication: SKIN ULCER
     Dosage: UNK
     Route: 065
  2. IMMUNOGLOBULINS NOS [Suspect]
     Active Substance: IMMUNE GLOBULIN NOS
     Indication: SKIN ULCER
     Dosage: UNK
     Route: 042
  3. SILDENAFIL. [Suspect]
     Active Substance: SILDENAFIL
     Indication: SKIN ULCER
     Dosage: UNK
     Route: 065
  4. BOTULINUM TOXIN [Suspect]
     Active Substance: BOTULINUM TOXIN NOS
     Indication: SKIN ULCER
     Dosage: UNK
     Route: 065
  5. NITROGLYCERIN. [Suspect]
     Active Substance: NITROGLYCERIN
     Indication: SKIN ULCER
     Dosage: UNK
     Route: 061

REACTIONS (3)
  - Drug ineffective [Unknown]
  - Product use in unapproved indication [Unknown]
  - Product use issue [Unknown]
